FAERS Safety Report 9305563 (Version 4)
Quarter: 2013Q2

REPORT INFORMATION
  Report Type: Report from Study
  Country: FR (occurrence: FR)
  Receive Date: 20130523
  Receipt Date: 20130620
  Transmission Date: 20140414
  Serious: Yes (Hospitalization)
  Sender: FDA-Public Use
  Company Number: FR-ROCHE-1221350

PATIENT
  Age: 72 Year
  Sex: Male
  Weight: 55 kg

DRUGS (9)
  1. VISMODEGIB [Suspect]
     Indication: BASAL CELL CARCINOMA
     Dosage: LAST DOSE PRIOR TO PNEUMONIA BACTERIAL: 01/MAY/2013. ?LAST DOSE PRIOR TO LEFT ARM PARETHESIA AND FAC
     Route: 048
     Dates: start: 20121109
  2. CLOPIDOGREL [Concomitant]
     Indication: ARTERIAL DISORDER
     Route: 065
     Dates: start: 20110401
  3. PARACETAMOL [Concomitant]
     Indication: PAIN PROPHYLAXIS
     Route: 065
     Dates: start: 20121109
  4. SMECTA (FRANCE) [Concomitant]
     Indication: DIARRHOEA
     Route: 065
     Dates: start: 20130221, end: 20130221
  5. IMODIUM [Concomitant]
     Indication: DIARRHOEA
     Route: 065
     Dates: start: 20130221, end: 20130221
  6. IMODIUM [Concomitant]
     Route: 065
     Dates: start: 20130401, end: 20130402
  7. IMODIUM [Concomitant]
     Route: 065
     Dates: start: 20130524, end: 20130528
  8. PLAVIX [Concomitant]
     Route: 065
     Dates: start: 20110401, end: 20110426
  9. KARDEGIC [Concomitant]
     Route: 065
     Dates: start: 20130427

REACTIONS (3)
  - Paraesthesia [Recovered/Resolved]
  - Paraesthesia [Recovered/Resolved]
  - Pneumonia bacterial [Recovered/Resolved with Sequelae]
